FAERS Safety Report 20226084 (Version 1)
Quarter: 2021Q4

REPORT INFORMATION
  Report Type: Spontaneous
  Country: JP (occurrence: JP)
  Receive Date: 20211224
  Receipt Date: 20211224
  Transmission Date: 20220303
  Serious: Yes (Death, Other)
  Sender: FDA-Public Use
  Company Number: JP-INSMED, INC.-2021-10466-JP

PATIENT
  Age: 83 Year
  Sex: Female

DRUGS (3)
  1. ARIKAYCE [Suspect]
     Active Substance: AMIKACIN
     Indication: Mycobacterium avium complex infection
     Dosage: 590 MILLIGRAM, QD
     Route: 055
     Dates: start: 20210802, end: 202111
  2. CLARITHROMYCIN [Concomitant]
     Active Substance: CLARITHROMYCIN
     Indication: Product used for unknown indication
  3. LEVOFLOXACIN HEMIHYDRATE [Concomitant]
     Active Substance: LEVOFLOXACIN
     Indication: Product used for unknown indication

REACTIONS (1)
  - Mycobacterium avium complex infection [Fatal]

NARRATIVE: CASE EVENT DATE: 20211101
